FAERS Safety Report 10862033 (Version 7)
Quarter: 2020Q1

REPORT INFORMATION
  Report Type: Report from Study
  Country: BR (occurrence: BR)
  Receive Date: 20150224
  Receipt Date: 20200317
  Transmission Date: 20200409
  Serious: Yes (Life-Threatening, Hospitalization, Disabling, Other)
  Sender: FDA-Public Use
  Company Number: PHHY2015BR008424

PATIENT
  Age: 75 Year
  Sex: Female
  Weight: 65 kg

DRUGS (25)
  1. SANDOSTATIN LAR DEPOT [Suspect]
     Active Substance: OCTREOTIDE ACETATE
     Dosage: 1 DF (30 MG), EACH 28 DAYS
     Route: 030
     Dates: start: 20150304
  2. SANDOSTATIN LAR DEPOT [Suspect]
     Active Substance: OCTREOTIDE ACETATE
     Dosage: 20 MG, UNK
     Route: 030
     Dates: start: 201810
  3. SANDOSTATIN LAR DEPOT [Suspect]
     Active Substance: OCTREOTIDE ACETATE
     Dosage: 20 MG, QMO
     Route: 030
     Dates: start: 201908, end: 201908
  4. CABERGOLINA [Concomitant]
     Active Substance: CABERGOLINE
     Indication: ACROMEGALY
     Dosage: 1 DF (WEDNESDAY, THURSDAY, FRIDAY AND SATURDAY)
     Route: 048
  5. GLIFAGE [Concomitant]
     Active Substance: METFORMIN HYDROCHLORIDE
     Dosage: 1 DF, BID
     Route: 048
  6. SIMVASTATIN. [Concomitant]
     Active Substance: SIMVASTATIN
     Indication: BLOOD CHOLESTEROL INCREASED
     Dosage: 20 MG, QD
     Route: 048
  7. SANDOSTATIN LAR DEPOT [Suspect]
     Active Substance: OCTREOTIDE ACETATE
     Indication: PITUITARY TUMOUR
     Dosage: 1 DF (AMPOULE), UNK (NOT SPECIFY THE FREQUENCY OF THE APPLICATIONS OF THE MEDICATION)
     Route: 030
     Dates: start: 2007
  8. SANDOSTATIN LAR DEPOT [Suspect]
     Active Substance: OCTREOTIDE ACETATE
     Dosage: 30 MG, QMO (ONCE A MOTH)
     Route: 030
  9. SANDOSTATIN LAR DEPOT [Suspect]
     Active Substance: OCTREOTIDE ACETATE
     Dosage: 10 MG, QMO (12 YEARS AGO)
     Route: 030
  10. SANDOSTATIN LAR DEPOT [Suspect]
     Active Substance: OCTREOTIDE ACETATE
     Dosage: 20 MG, QMO
     Route: 030
  11. SANDOSTATIN LAR DEPOT [Suspect]
     Active Substance: OCTREOTIDE ACETATE
     Dosage: 30 MG, QMO
     Route: 030
     Dates: start: 201908
  12. LOSARTAN. [Concomitant]
     Active Substance: LOSARTAN
     Indication: HYPERTENSION
     Dosage: 2 DF, QD
     Route: 048
     Dates: start: 2006
  13. AZUKON [Concomitant]
     Active Substance: GLICLAZIDE
     Indication: DIABETES MELLITUS
     Dosage: 1 DF, ALL DAY
     Route: 048
  14. SANDOSTATIN LAR DEPOT [Suspect]
     Active Substance: OCTREOTIDE ACETATE
     Indication: ACROMEGALY
     Dosage: 30 MG, UNK
     Route: 030
     Dates: start: 20070101
  15. SANDOSTATIN LAR DEPOT [Suspect]
     Active Substance: OCTREOTIDE ACETATE
     Dosage: 1 DF (30 MG), EACH 28 DAYS
     Route: 030
  16. SANDOSTATIN LAR DEPOT [Suspect]
     Active Substance: OCTREOTIDE ACETATE
     Dosage: 30 MG, QMO
     Route: 030
  17. REVANGE [Concomitant]
     Indication: SPINAL PAIN
     Dosage: 1 DF (375 MG), PRN
     Route: 048
  18. LOSARTAN. [Concomitant]
     Active Substance: LOSARTAN
     Dosage: 1 DF, BID
     Route: 048
  19. SANDOSTATIN LAR DEPOT [Suspect]
     Active Substance: OCTREOTIDE ACETATE
     Dosage: 30 MG
     Route: 065
     Dates: start: 2007, end: 201908
  20. LOSARTAN. [Concomitant]
     Active Substance: LOSARTAN
     Dosage: 50 MG, BID (12 YEARS AGO)
     Route: 048
  21. GLIFAGE [Concomitant]
     Active Substance: METFORMIN HYDROCHLORIDE
     Indication: DIABETES MELLITUS
     Dosage: 2 DF, QD
     Route: 048
     Dates: start: 2006
  22. GLIFAGE [Concomitant]
     Active Substance: METFORMIN HYDROCHLORIDE
     Dosage: 500 MG, BID (12 YEARS AGO)
     Route: 065
  23. CABERTRIX [Concomitant]
     Indication: PITUITARY TUMOUR
     Dosage: 1 DF (5 MG), QHS FROM MONDAY TO FRIDAY
     Route: 048
  24. SANDOSTATIN LAR DEPOT [Suspect]
     Active Substance: OCTREOTIDE ACETATE
     Dosage: 20 MG, QMO
     Route: 030
     Dates: start: 201810
  25. PURAN [Concomitant]
     Active Substance: LEVOTHYROXINE SODIUM
     Indication: THYROID DISORDER
     Dosage: 125 MG, QD
     Route: 048

REACTIONS (35)
  - Feeling abnormal [Recovered/Resolved]
  - Nervousness [Recovered/Resolved]
  - Intervertebral disc space narrowing [Recovering/Resolving]
  - Musculoskeletal pain [Not Recovered/Not Resolved]
  - Pain in extremity [Recovering/Resolving]
  - Nervousness [Recovered/Resolved]
  - Gait disturbance [Not Recovered/Not Resolved]
  - Arthralgia [Not Recovered/Not Resolved]
  - Insomnia [Recovered/Resolved]
  - Hyperhidrosis [Not Recovered/Not Resolved]
  - Sleep disorder [Not Recovered/Not Resolved]
  - Malaise [Recovering/Resolving]
  - Panic disorder [Not Recovered/Not Resolved]
  - Hypoaesthesia [Not Recovered/Not Resolved]
  - Pain [Recovered/Resolved]
  - Body height decreased [Unknown]
  - Swelling [Recovered/Resolved]
  - Ear neoplasm [Recovered/Resolved]
  - Back disorder [Unknown]
  - Peripheral swelling [Recovered/Resolved]
  - Fall [Recovered/Resolved]
  - Feeling abnormal [Unknown]
  - Fall [Recovered/Resolved]
  - Fall [Recovered/Resolved]
  - Gait disturbance [Recovered/Resolved]
  - Weight decreased [Unknown]
  - Musculoskeletal stiffness [Not Recovered/Not Resolved]
  - Limb deformity [Not Recovered/Not Resolved]
  - Weight increased [Not Recovered/Not Resolved]
  - Fall [Recovered/Resolved]
  - Dyspnoea [Recovered/Resolved]
  - Muscular weakness [Recovering/Resolving]
  - Dyspnoea [Recovered/Resolved]
  - Movement disorder [Not Recovered/Not Resolved]
  - Malaise [Recovering/Resolving]

NARRATIVE: CASE EVENT DATE: 20141228
